FAERS Safety Report 18715217 (Version 1)
Quarter: 2021Q1

REPORT INFORMATION
  Report Type: Spontaneous
  Country: US (occurrence: US)
  Receive Date: 20210107
  Receipt Date: 20210107
  Transmission Date: 20210419
  Serious: Yes (Hospitalization, Other)
  Sender: FDA-Public Use
  Company Number: US-CIPLA LTD.-2020US09664

PATIENT

DRUGS (2)
  1. METOPROLOL. [Suspect]
     Active Substance: METOPROLOL
     Indication: PRODUCT USED FOR UNKNOWN INDICATION
     Dosage: 200 MILLIGRAM, BID
     Route: 065
  2. LISINOPRIL. [Suspect]
     Active Substance: LISINOPRIL
     Indication: PRODUCT USED FOR UNKNOWN INDICATION
     Dosage: 2.5 MILLIGRAM, DAILY
     Route: 065

REACTIONS (9)
  - Anaphylactic reaction [Recovered/Resolved]
  - Shock [Recovered/Resolved]
  - Hypovolaemia [Recovered/Resolved]
  - Multiple organ dysfunction syndrome [Recovered/Resolved]
  - Sinus bradycardia [Recovered/Resolved]
  - Atrioventricular block [Recovered/Resolved]
  - Hyperkalaemia [Recovered/Resolved]
  - Renal failure [Recovered/Resolved]
  - Diabetic ketoacidosis [Recovered/Resolved]
